FAERS Safety Report 21340803 (Version 1)
Quarter: 2022Q3

REPORT INFORMATION
  Report Type: Spontaneous
  Country: GB (occurrence: GB)
  Receive Date: 20220916
  Receipt Date: 20220916
  Transmission Date: 20221027
  Serious: Yes (Other)
  Sender: FDA-Public Use
  Company Number: GB-MYLANLABS-2019M1001004

PATIENT
  Sex: Male

DRUGS (23)
  1. CODEINE PHOSPHATE [Suspect]
     Active Substance: CODEINE PHOSPHATE
     Indication: Schizophrenia
     Dosage: 15 MILLIGRAM, AS NECESSARY
     Route: 065
  2. CODEINE PHOSPHATE [Suspect]
     Active Substance: CODEINE PHOSPHATE
     Dosage: UNK
     Route: 065
  3. OLANZAPINE [Suspect]
     Active Substance: OLANZAPINE
     Indication: Schizophrenia
     Dosage: 20 MILLIGRAM, ONCE A DAY(EVERY NIGHT)
     Route: 065
  4. OLANZAPINE [Suspect]
     Active Substance: OLANZAPINE
     Dosage: UNK
     Route: 065
  5. CLONAZEPAM [Suspect]
     Active Substance: CLONAZEPAM
     Indication: Schizophrenia
     Dosage: 1 MILLIGRAM, ONCE A DAY (0.5 MILLIGRAM, ONCE A DAY, PM)
     Route: 065
  6. CLONAZEPAM [Suspect]
     Active Substance: CLONAZEPAM
     Dosage: 0.5 MILLIGRAM, ONCE A DAY, EVERY NIGHT
     Route: 065
  7. CLONAZEPAM [Suspect]
     Active Substance: CLONAZEPAM
     Dosage: 5 MILLIGRAM, ONCE A DAY(5 MILLIGRAM, QD (5 MG, DAILY) )
     Route: 065
  8. CLONAZEPAM [Suspect]
     Active Substance: CLONAZEPAM
     Dosage: 0.5 MG, ONCE PER DAY (0.5 MG, ON)
     Route: 065
  9. CLONAZEPAM [Suspect]
     Active Substance: CLONAZEPAM
     Dosage: 0.5 MG, ONCE PER DAY (0.5 MG, PM)
     Route: 065
  10. CLONAZEPAM [Suspect]
     Active Substance: CLONAZEPAM
     Dosage: 1 MG, ONCE PER DAY (0.5 MILLIGRAM, PM)1 MILLIGRAM, ONCE A DAY (0.5 MILLIGRAM, PM)0.5 1 MILLIGRAM, ON
     Route: 065
  11. CLONAZEPAM [Suspect]
     Active Substance: CLONAZEPAM
     Dosage: 0.5 MILLIGRAM, ONCE A DAY(0.5 MILLIGRAM, ONCE A DAY ( PM))
     Route: 065
  12. CLONAZEPAM [Suspect]
     Active Substance: CLONAZEPAM
     Dosage: 5 MILLIGRAM, ONCE A DAY
     Route: 065
  13. FLUPENTIXOL [Suspect]
     Active Substance: FLUPENTIXOL
     Indication: Schizophrenia
     Dosage: 200 MILLIGRAM, EVERY 2 WEEKS (200 MILLIGRAM, Q2W)
     Route: 065
  14. FLUPENTIXOL [Suspect]
     Active Substance: FLUPENTIXOL
     Dosage: 200 MILLIGRAM, 0.5 WEEK, EVERY 2 WEEKS
     Route: 065
  15. VALPROATE SODIUM [Suspect]
     Active Substance: VALPROATE SODIUM
     Indication: Schizophrenia
     Dosage: 700 MILLIGRAM, ONCE A DAY, EVERY NIGHT (QHS)
     Route: 065
  16. VALPROATE SODIUM [Suspect]
     Active Substance: VALPROATE SODIUM
     Dosage: 500 MILLIGRAM, ONCE A DAY(EACH MORNING)
     Route: 065
  17. VALPROATE SODIUM [Suspect]
     Active Substance: VALPROATE SODIUM
     Dosage: 1200 MILLIGRAM, ONCE A DAY (500MG OM 700MG ON)
     Route: 065
  18. VALPROATE SODIUM [Suspect]
     Active Substance: VALPROATE SODIUM
     Dosage: UNK, ONCE A DAY(BID (Q12H (500 MG EVERY MORNING, 700 MG EVERY NIGHT))
     Route: 065
  19. VALPROATE SODIUM [Suspect]
     Active Substance: VALPROATE SODIUM
     Dosage: 700 MILLIGRAM, ONCE A DAY(700 MILLIGRAM, PM (700 MG, QD (700 MILLIGRAM, PM (12 HRS))
     Route: 065
  20. VALPROATE SODIUM [Suspect]
     Active Substance: VALPROATE SODIUM
     Dosage: 500 MILLIGRAM, ONCE A DAY  (500 MILLIGRAM, AM ((12 HRS)) )
     Route: 065
  21. VALPROATE SODIUM [Suspect]
     Active Substance: VALPROATE SODIUM
     Dosage: 1400 MILLIGRAM, ONCE A DAY
     Route: 065
  22. VALPROATE SODIUM [Suspect]
     Active Substance: VALPROATE SODIUM
     Dosage: 500 MILLIGRAM, ONCE A DAY (500 MG, 12 HRDAILY)
     Route: 065
  23. VALPROATE SODIUM [Suspect]
     Active Substance: VALPROATE SODIUM
     Dosage: UNK  500MG OM 700MG ON
     Route: 065

REACTIONS (3)
  - Neutropenia [Recovered/Resolved]
  - Off label use [Unknown]
  - Intentional product misuse [Unknown]

NARRATIVE: CASE EVENT DATE: 20180809
